FAERS Safety Report 8935011 (Version 1)
Quarter: 2012Q4

REPORT INFORMATION
  Report Type: 
  Country: US (occurrence: US)
  Receive Date: 20121129
  Receipt Date: 20121129
  Transmission Date: 20130627
  Serious: No
  Sender: FDA-Public Use
  Company Number: US-B.I. PHARMACEUTICALS,INC./RIDGEFIELD-2012-BI-00179BP

PATIENT
  Sex: Male

DRUGS (3)
  1. TRADJENTA [Suspect]
     Indication: TYPE 2 DIABETES MELLITUS
     Dosage: 5 mg
     Route: 048
  2. GLIMEPIRIDE [Concomitant]
  3. METFORMIN [Concomitant]

REACTIONS (1)
  - Confusional state [Recovered/Resolved]
